FAERS Safety Report 20571950 (Version 1)
Quarter: 2022Q1

REPORT INFORMATION
  Report Type: Spontaneous
  Country: US (occurrence: US)
  Receive Date: 20220309
  Receipt Date: 20220309
  Transmission Date: 20220423
  Serious: No
  Sender: FDA-Public Use
  Company Number: US-GSKCCFUS-Case-01314449_AE-76506

PATIENT

DRUGS (2)
  1. SOTROVIMAB [Suspect]
     Active Substance: SOTROVIMAB
     Indication: COVID-19 prophylaxis
     Dosage: 500 MG
  2. SOTROVIMAB [Suspect]
     Active Substance: SOTROVIMAB
     Indication: Allergy to vaccine

REACTIONS (2)
  - Off label use [Unknown]
  - Product confusion [Unknown]
